FAERS Safety Report 10272901 (Version 1)
Quarter: 2014Q1

REPORT INFORMATION
  Report Type: Spontaneous
  Country: US (occurrence: None)
  Receive Date: 20140306
  Receipt Date: 20140306
  Transmission Date: 20141002
  Serious: Yes (Other)
  Sender: FDA-Public Use
  Company Number: 163-21880-13060836

PATIENT
  Age: 87 Year
  Sex: Female
  Weight: 52.2 kg

DRUGS (12)
  1. REVLIMID (LENALIDOMIDE) (10 MILLIGRAM, CAPSULES) [Suspect]
     Indication: PLASMA CELL MYELOMA
     Dosage: 10 MG, 14 IN 14 D, PO
     Route: 048
     Dates: start: 20130107, end: 20130319
  2. PANTOPRAZOLE SODIUM (PANTOPRAZOLE SODIUM) (TABLETS) [Concomitant]
  3. RAMIPRIL (RAMIPRIL) (CAPSULES) [Concomitant]
  4. DEXAMETHASONE (DEXAMETHASONE) (INJECTION) [Concomitant]
  5. ACYCLOVIR (ACICLOVIR) (TABLETS) [Concomitant]
  6. ASPIRIN LOW (ACETYLSALICYLIC ACID) (ENTERIC-COATED TABLET) [Concomitant]
  7. COMPLETE MULTIVITAMINS (MULTIVITAMINS) (TABLETS) [Concomitant]
  8. BORTEZOMIB (BORTEZOMIB) [Concomitant]
  9. ZOLEDRONIC ACID (ZOLEDRONIC ACID) [Concomitant]
  10. ATIVAN (LORAZEPAM) (TABLETS) [Concomitant]
  11. FENTANYL (FENTANYL) (POULTICE OR PATCH) [Concomitant]
  12. PROCHLORPERAZINE MALEATE (PROCHLORPERAZINE MALEATE) (TABLETS) [Concomitant]

REACTIONS (5)
  - Renal failure acute [None]
  - Fatigue [None]
  - Toothache [None]
  - Rash [None]
  - Diarrhoea [None]
